FAERS Safety Report 17247878 (Version 1)
Quarter: 2020Q1

REPORT INFORMATION
  Report Type: Spontaneous
  Country: US (occurrence: US)
  Receive Date: 20200108
  Receipt Date: 20200108
  Transmission Date: 20200409
  Serious: No
  Sender: FDA-Public Use
  Company Number: US-THE RITEDOSE CORPORATION-2019RIT000286

PATIENT

DRUGS (4)
  1. OMEPRAZOLE. [Concomitant]
     Active Substance: OMEPRAZOLE
     Dosage: 40 MG, UNK
  2. OMEPRAZOLE. [Concomitant]
     Active Substance: OMEPRAZOLE
     Indication: PRODUCT USED FOR UNKNOWN INDICATION
     Dosage: 20 MG, UNK
  3. ALBUTEROL SULFATE INHALATION SOLUTION [Suspect]
     Active Substance: ALBUTEROL SULFATE
     Indication: MYCOBACTERIUM AVIUM COMPLEX INFECTION
     Dosage: 1 VIAL, QD
     Route: 045
  4. SODIUM CHLORIDE 0.9% [Concomitant]
     Active Substance: SODIUM CHLORIDE
     Indication: PRODUCT USED FOR UNKNOWN INDICATION
     Dosage: UNK

REACTIONS (5)
  - Dysphagia [Not Recovered/Not Resolved]
  - Muscle spasms [Not Recovered/Not Resolved]
  - Product use in unapproved indication [Unknown]
  - Pharyngeal swelling [Not Recovered/Not Resolved]
  - Throat irritation [Not Recovered/Not Resolved]

NARRATIVE: CASE EVENT DATE: 2019
